FAERS Safety Report 10476681 (Version 1)
Quarter: 2014Q3

REPORT INFORMATION
  Report Type: Spontaneous
  Country: JP (occurrence: None)
  Receive Date: 20140923
  Receipt Date: 20140923
  Transmission Date: 20150326
  Serious: Yes (Other)
  Sender: FDA-Public Use
  Company Number: JP20140318

PATIENT
  Age: 74 Year
  Sex: Male

DRUGS (4)
  1. MITOMYCIN. [Concomitant]
     Active Substance: MITOMYCIN
  2. EPIRUBICIN [Concomitant]
     Active Substance: EPIRUBICIN
  3. GELATIN [Concomitant]
     Active Substance: GELATIN
  4. LIPIODOL ULTRA FLUID [Suspect]
     Active Substance: ETHIODIZED OIL
     Indication: THERAPEUTIC EMBOLISATION
     Route: 013
     Dates: start: 20081009, end: 20081009

REACTIONS (2)
  - Decreased appetite [None]
  - Off label use [None]

NARRATIVE: CASE EVENT DATE: 20081009
